FAERS Safety Report 15429510 (Version 1)
Quarter: 2018Q3

REPORT INFORMATION
  Report Type: Spontaneous
  Country: US (occurrence: US)
  Receive Date: 20180920
  Receipt Date: 20180920
  Transmission Date: 20181010
  Serious: Yes (Hospitalization, Disabling)
  Sender: FDA-Public Use
  Company Number: None

PATIENT
  Age: 59 Year
  Sex: Male
  Weight: 113.4 kg

DRUGS (1)
  1. INVOKANA [Suspect]
     Active Substance: CANAGLIFLOZIN
     Indication: TYPE 2 DIABETES MELLITUS
     Route: 048
     Dates: start: 20150601, end: 20180920

REACTIONS (6)
  - Dry gangrene [None]
  - Necrosis [None]
  - Wound [None]
  - Osteomyelitis [None]
  - Peripheral arterial occlusive disease [None]
  - Bacterial infection [None]

NARRATIVE: CASE EVENT DATE: 20180920
